FAERS Safety Report 18910643 (Version 2)
Quarter: 2021Q2

REPORT INFORMATION
  Report Type: Spontaneous
  Country: US (occurrence: US)
  Receive Date: 20210218
  Receipt Date: 20210505
  Transmission Date: 20210717
  Serious: Yes (Hospitalization, Other)
  Sender: FDA-Public Use
  Company Number: US-UCBSA-2021007124

PATIENT
  Age: 2 Year
  Sex: Female

DRUGS (9)
  1. PENTOBARBITAL. [Concomitant]
     Active Substance: PENTOBARBITAL
     Indication: GENERALISED TONIC-CLONIC SEIZURE
     Dosage: UNK
  2. CLOBAZAM. [Concomitant]
     Active Substance: CLOBAZAM
     Dosage: DOSE INCREASED
  3. LEVETIRACETAM. [Suspect]
     Active Substance: LEVETIRACETAM
     Indication: GENERALISED TONIC-CLONIC SEIZURE
     Dosage: 27 MILLIGRAMS PER KILOGRAMS PER DAY
  4. CLOBAZAM. [Concomitant]
     Active Substance: CLOBAZAM
     Indication: GENERALISED TONIC-CLONIC SEIZURE
     Dosage: UNK
  5. MIDAZOLAM. [Concomitant]
     Active Substance: MIDAZOLAM
     Indication: GENERALISED TONIC-CLONIC SEIZURE
     Dosage: UNK
  6. LEVETIRACETAM. [Suspect]
     Active Substance: LEVETIRACETAM
     Dosage: 50 MILLIGRAMS PER KILOGRAMS PER DAY
  7. LEVETIRACETAM. [Suspect]
     Active Substance: LEVETIRACETAM
     Dosage: 100 MILLIGRAMS PER KILOGRAMS PER DAY
  8. LORAZEPAM. [Concomitant]
     Active Substance: LORAZEPAM
     Indication: GENERALISED TONIC-CLONIC SEIZURE
     Dosage: UNK
  9. VALPROIC ACID. [Concomitant]
     Active Substance: VALPROIC ACID
     Indication: GENERALISED TONIC-CLONIC SEIZURE
     Dosage: UNK

REACTIONS (1)
  - Status epilepticus [Recovered/Resolved]
